FAERS Safety Report 21805695 (Version 1)
Quarter: 2023Q1

REPORT INFORMATION
  Report Type: Spontaneous
  Country: JP (occurrence: None)
  Receive Date: 20230102
  Receipt Date: 20230102
  Transmission Date: 20230417
  Serious: Yes (Other)
  Sender: FDA-Public Use
  Company Number: 2022A418055

PATIENT
  Sex: Female

DRUGS (1)
  1. TAGRISSO [Suspect]
     Active Substance: OSIMERTINIB
     Indication: Non-small cell lung cancer
     Route: 048
     Dates: start: 20221213

REACTIONS (4)
  - Road traffic accident [Unknown]
  - Pruritus [Unknown]
  - Sleep disorder due to general medical condition, insomnia type [Unknown]
  - Blister [Unknown]

NARRATIVE: CASE EVENT DATE: 20221220
